FAERS Safety Report 11100254 (Version 3)
Quarter: 2015Q2

REPORT INFORMATION
  Report Type: Report from Study
  Country: CL (occurrence: CL)
  Receive Date: 20150508
  Receipt Date: 20150626
  Transmission Date: 20150821
  Serious: Yes (Hospitalization)
  Sender: FDA-Public Use
  Company Number: CL-PFIZER INC-2015128784

PATIENT
  Age: 53 Year
  Sex: Female
  Weight: 69 kg

DRUGS (3)
  1. OMEPRAZOLE. [Concomitant]
     Active Substance: OMEPRAZOLE
     Dosage: 20 MG PER DAY
     Route: 048
  2. INDOMETACINE [Concomitant]
     Dosage: 25 MG EVERY 12 HOURS
  3. TOFACITINIB CITRATE [Suspect]
     Active Substance: TOFACITINIB CITRATE
     Indication: PSORIASIS
     Dosage: UNK, 2X/DAY
     Route: 048
     Dates: start: 20120827, end: 20150407

REACTIONS (1)
  - Cat scratch disease [Recovering/Resolving]

NARRATIVE: CASE EVENT DATE: 20150404
